FAERS Safety Report 18786055 (Version 1)
Quarter: 2021Q1

REPORT INFORMATION
  Report Type: Spontaneous
  Country: AU (occurrence: AU)
  Receive Date: 20210125
  Receipt Date: 20210125
  Transmission Date: 20210419
  Serious: Yes (Other)
  Sender: FDA-Public Use
  Company Number: AU-SA-2021SA020879

PATIENT
  Age: 67 Year
  Sex: Male

DRUGS (14)
  1. METOCLOPRAMIDE HYDROCHLORIDE. [Suspect]
     Active Substance: METOCLOPRAMIDE HYDROCHLORIDE
  2. ALLOPURINOL. [Concomitant]
     Active Substance: ALLOPURINOL
  3. DOMPERIDONE [Suspect]
     Active Substance: DOMPERIDONE
  4. DULOXETINE HYDROCHLORIDE. [Suspect]
     Active Substance: DULOXETINE HYDROCHLORIDE
  5. HYDROCHLOROTHIAZIDE/IRBESARTAN [Suspect]
     Active Substance: HYDROCHLOROTHIAZIDE\IRBESARTAN
  6. ROSUVASTATIN. [Suspect]
     Active Substance: ROSUVASTATIN
  7. FUROSEMIDE. [Suspect]
     Active Substance: FUROSEMIDE
  8. AMLODIPINE [Suspect]
     Active Substance: AMLODIPINE BESYLATE
  9. PREGABALIN. [Suspect]
     Active Substance: PREGABALIN
     Indication: NAUSEA
     Dosage: 150 MG, Q12H
  10. PANTOPRAZOLE [Suspect]
     Active Substance: PANTOPRAZOLE
  11. METOPROLOL SALT NOT SPECIFIED [Suspect]
     Active Substance: METOPROLOL
  12. STEMETIL [Suspect]
     Active Substance: PROCHLORPERAZINE
     Indication: NAUSEA
  13. NORFLOXACIN [Suspect]
     Active Substance: NORFLOXACIN
     Indication: NAUSEA
  14. FENOFIBRATE. [Suspect]
     Active Substance: FENOFIBRATE

REACTIONS (1)
  - Dystonia [Unknown]

NARRATIVE: CASE EVENT DATE: 20200729
